FAERS Safety Report 20357469 (Version 2)
Quarter: 2022Q1

REPORT INFORMATION
  Report Type: Spontaneous
  Country: US (occurrence: US)
  Receive Date: 20220120
  Receipt Date: 20220124
  Transmission Date: 20220424
  Serious: No
  Sender: FDA-Public Use
  Company Number: US-PERRIGO-21US033280

PATIENT
  Age: 83 Year
  Sex: Female

DRUGS (1)
  1. TRETINOIN [Suspect]
     Active Substance: TRETINOIN
     Indication: Acne
     Dosage: UNKNOWN, UNKNOWN
     Route: 061
     Dates: start: 2021

REACTIONS (4)
  - Skin tightness [Unknown]
  - Application site warmth [Unknown]
  - Application site erythema [Unknown]
  - Application site swelling [Unknown]

NARRATIVE: CASE EVENT DATE: 20210101
